FAERS Safety Report 21965339 (Version 1)
Quarter: 2023Q1

REPORT INFORMATION
  Report Type: Spontaneous
  Country: FR (occurrence: FR)
  Receive Date: 20230208
  Receipt Date: 20230208
  Transmission Date: 20230417
  Serious: Yes (Hospitalization, Other)
  Sender: FDA-Public Use
  Company Number: FR-AFSSAPS-RN2023000087

PATIENT
  Age: 48 Year
  Sex: Male

DRUGS (6)
  1. ACETAMINOPHEN [Suspect]
     Active Substance: ACETAMINOPHEN
     Indication: Product used for unknown indication
     Dosage: 30 GRAM, UNK
     Route: 048
     Dates: start: 20230106, end: 20230106
  2. LAMALINE [Concomitant]
     Indication: Product used for unknown indication
     Dosage: 4 DOSAGE FORM
     Route: 048
     Dates: start: 20230106, end: 20230106
  3. ALPRAZOLAM [Concomitant]
     Active Substance: ALPRAZOLAM
     Indication: Product used for unknown indication
     Dosage: 0.5 MILLIGRAM
     Route: 048
     Dates: start: 20230106, end: 20230106
  4. MIRTAZAPINE [Concomitant]
     Active Substance: MIRTAZAPINE
     Indication: Product used for unknown indication
     Dosage: 30 MILLIGRAM, 2 CP OF 15MG
     Route: 048
     Dates: start: 20230106, end: 20230106
  5. OMEPRAZOLE [Concomitant]
     Active Substance: OMEPRAZOLE
     Indication: Product used for unknown indication
     Dosage: 40 MILLIGRAM, 2 CP OF 20MG
     Route: 048
     Dates: start: 20230106, end: 20230106
  6. ZOPICLONE [Concomitant]
     Active Substance: ZOPICLONE
     Indication: Product used for unknown indication
     Dosage: 15 MILLIGRAM, 2 CP OF 7.5MG
     Route: 048
     Dates: start: 20230106, end: 20230106

REACTIONS (4)
  - Hepatitis acute [Recovering/Resolving]
  - Pancreatitis [Recovering/Resolving]
  - Poisoning deliberate [Recovered/Resolved]
  - Suicide attempt [Unknown]

NARRATIVE: CASE EVENT DATE: 20230106
